FAERS Safety Report 11741929 (Version 1)
Quarter: 2015Q4

REPORT INFORMATION
  Report Type: Spontaneous
  Country: US (occurrence: US)
  Receive Date: 20151116
  Receipt Date: 20151116
  Transmission Date: 20160304
  Serious: Yes (Other)
  Sender: FDA-Public Use
  Company Number: US-JNJFOC-20151106545

PATIENT
  Age: 66 Year
  Sex: Male
  Weight: 77.57 kg

DRUGS (3)
  1. KEPPRA [Concomitant]
     Active Substance: LEVETIRACETAM
     Indication: SEIZURE
     Route: 065
  2. FENTANYL TRANSDERMAL SYSTEM [Suspect]
     Active Substance: FENTANYL
     Indication: PAIN
     Route: 062
     Dates: start: 2014, end: 201412
  3. FENTANYL TRANSDERMAL SYSTEM [Suspect]
     Active Substance: FENTANYL
     Indication: PAIN
     Route: 062
     Dates: start: 20141104

REACTIONS (11)
  - Limb injury [Unknown]
  - Disorientation [Recovered/Resolved]
  - Osteoporosis [Not Recovered/Not Resolved]
  - Contusion [Unknown]
  - Wrong technique in product usage process [Unknown]
  - Rash erythematous [Unknown]
  - Inadequate analgesia [Unknown]
  - Chest injury [Unknown]
  - Fall [Recovered/Resolved]
  - Body height decreased [Not Recovered/Not Resolved]
  - Syncope [Recovered/Resolved]

NARRATIVE: CASE EVENT DATE: 201411
